FAERS Safety Report 4667142-7 (Version None)
Quarter: 2005Q2

REPORT INFORMATION
  Report Type: 
  Country: None (occurrence: None)
  Receive Date: 20050520
  Receipt Date: 20040329
  Transmission Date: 20051028
  Serious: Yes (Other)
  Sender: FDA-Public Use
  Company Number: PHEH2004US03637

PATIENT
  Age: 59 Year
  Sex: Female
  Weight: 87 kg

DRUGS (4)
  1. THALIDOMIDE [Concomitant]
     Indication: MULTIPLE MYELOMA
     Dosage: 200 MG, QD
     Route: 048
     Dates: start: 20021105
  2. LASIX [Concomitant]
  3. LISINOPRIL [Concomitant]
  4. ZOMETA [Suspect]
     Indication: MULTIPLE MYELOMA
     Dosage: 4 MG, UNK
     Route: 042
     Dates: start: 20020423, end: 20030725

REACTIONS (5)
  - ASEPTIC NECROSIS BONE [None]
  - DENTAL TREATMENT [None]
  - INFECTION [None]
  - PAIN [None]
  - TOOTH EXTRACTION [None]
